FAERS Safety Report 9110316 (Version 1)
Quarter: 2013Q1

REPORT INFORMATION
  Report Type: Spontaneous
  Country: DK (occurrence: DK)
  Receive Date: 20130222
  Receipt Date: 20130222
  Transmission Date: 20140127
  Serious: Yes (Hospitalization)
  Sender: FDA-Public Use
  Company Number: DK-009507513-1302DNK009013

PATIENT
  Age: 45 Year
  Sex: Male

DRUGS (2)
  1. JANUVIA [Suspect]
     Indication: DIABETES MELLITUS
     Dosage: UNK
     Route: 048
     Dates: start: 20121112
  2. CISORDINOL TABLETS [Concomitant]
     Indication: BIPOLAR I DISORDER

REACTIONS (1)
  - Depression [Unknown]
